FAERS Safety Report 7290102-7 (Version None)
Quarter: 2011Q1

REPORT INFORMATION
  Report Type: 
  Country: None (occurrence: None)
  Receive Date: 20110214
  Receipt Date: 20110209
  Transmission Date: 20110831
  Serious: Yes (Other)
  Sender: FDA-Public Use
  Company Number: GB-BRISTOL-MYERS SQUIBB COMPANY-15540685

PATIENT
  Age: 4 Decade
  Sex: Male

DRUGS (3)
  1. ATAZANAVIR [Suspect]
     Dosage: 150MG TWICE PER DAY
     Route: 065
  2. RITONAVIR [Interacting]
     Route: 065
  3. CELSENTRI [Interacting]
     Dosage: REDUCED TO 150MG ONCE DAILY.
     Route: 065
     Dates: start: 20110101

REACTIONS (3)
  - RENAL FAILURE ACUTE [None]
  - DRUG INTERACTION [None]
  - NEPHROLITHIASIS [None]
